FAERS Safety Report 23389327 (Version 1)
Quarter: 2024Q1

REPORT INFORMATION
  Report Type: Spontaneous
  Country: US (occurrence: US)
  Receive Date: 20240110
  Receipt Date: 20240110
  Transmission Date: 20240410
  Serious: No
  Sender: FDA-Public Use
  Company Number: US-REGENERON PHARMACEUTICALS, INC.-2023-028817

PATIENT
  Sex: Male

DRUGS (3)
  1. EYLEA [Suspect]
     Active Substance: AFLIBERCEPT
     Indication: Ophthalmic artery occlusion
     Dosage: 0.05 ML, EVERY 4 WEEKS,
     Route: 031
     Dates: start: 201307
  2. EYLEA [Suspect]
     Active Substance: AFLIBERCEPT
     Dosage: 0.07 ML, EVERY 4 WEEKS
     Route: 031
  3. EYLEA [Suspect]
     Active Substance: AFLIBERCEPT
     Dosage: 0.1 ML, EVERY 4 WEEKS
     Route: 031
     Dates: start: 202210

REACTIONS (1)
  - Off label use [Unknown]

NARRATIVE: CASE EVENT DATE: 20130701
